FAERS Safety Report 4697052-0 (Version None)
Quarter: 2005Q2

REPORT INFORMATION
  Report Type: 
  Country: None (occurrence: None)
  Receive Date: 20050620
  Receipt Date: 20050503
  Transmission Date: 20051028
  Serious: No
  Sender: FDA-Public Use
  Company Number: US-YAMANOUCHI-YPA20050237

PATIENT
  Age: 74 Year
  Sex: Female
  Weight: 99.7913 kg

DRUGS (9)
  1. VESICARE [Suspect]
     Indication: HYPERTONIC BLADDER
     Dosage: 5 MG QD PO
     Route: 048
     Dates: start: 20050429
  2. LESCOL [Concomitant]
  3. NEURONTIN [Concomitant]
  4. SYNTHROID [Concomitant]
  5. ZANAFLEX [Concomitant]
  6. BACLOFEN [Concomitant]
  7. ZESTRIL [Concomitant]
  8. VICODIN [Concomitant]
  9. ESTRACE [Concomitant]

REACTIONS (1)
  - ABDOMINAL PAIN [None]
